FAERS Safety Report 6676743-6 (Version None)
Quarter: 2010Q2

REPORT INFORMATION
  Report Type: 
  Country: None (occurrence: None)
  Receive Date: 20100412
  Receipt Date: 20100407
  Transmission Date: 20101027
  Serious: Yes (Death, Hospitalization, Disabling, Other)
  Sender: FDA-Public Use
  Company Number: US-SANOFI-AVENTIS-2010SA019835

PATIENT
  Age: 85 Year
  Sex: Female

DRUGS (12)
  1. PLAVIX [Suspect]
     Route: 048
     Dates: start: 20080101, end: 20100201
  2. AMITRIPTYLINE HCL [Concomitant]
  3. MEVACOR [Concomitant]
  4. DARVOCET-N 100 [Concomitant]
  5. HYZAAR [Concomitant]
  6. LABETALOL HCL [Concomitant]
  7. NORVASC [Concomitant]
  8. VITAMIN D [Concomitant]
  9. ALBUTEROL [Concomitant]
  10. PHENERGAN [Concomitant]
  11. MELOXICAM [Concomitant]
  12. FENTANYL-100 [Concomitant]

REACTIONS (12)
  - AORTIC ANEURYSM [None]
  - ATRIAL FIBRILLATION [None]
  - FATIGUE [None]
  - GALLBLADDER DISORDER [None]
  - HYPOTENSION [None]
  - MALAISE [None]
  - MENTAL STATUS CHANGES [None]
  - MOBILITY DECREASED [None]
  - NAUSEA [None]
  - RENAL FAILURE ACUTE [None]
  - URINARY TRACT INFECTION [None]
  - VOMITING [None]
